FAERS Safety Report 7606157-3 (Version None)
Quarter: 2011Q3

REPORT INFORMATION
  Report Type: 
  Country: None (occurrence: None)
  Receive Date: 20110713
  Receipt Date: 20110707
  Transmission Date: 20111222
  Serious: Yes (Other)
  Sender: FDA-Public Use
  Company Number: JP-BAYER-2011-054617

PATIENT
  Age: 38 Year
  Sex: Female
  Weight: 42 kg

DRUGS (1)
  1. YAZ [Suspect]
     Indication: DYSMENORRHOEA
     Dosage: 1 DF, QD
     Route: 048
     Dates: start: 20110319, end: 20110618

REACTIONS (3)
  - DEAFNESS [None]
  - MALAISE [None]
  - PYREXIA [None]
